FAERS Safety Report 5139266-1 (Version None)
Quarter: 2006Q4

REPORT INFORMATION
  Report Type: 
  Country: None (occurrence: None)
  Receive Date: 20061030
  Receipt Date: 20060831
  Transmission Date: 20070319
  Serious: Yes (Disabling)
  Sender: FDA-Public Use
  Company Number: DE-BRISTOL-MYERS SQUIBB COMPANY-13501556

PATIENT
  Age: 55 Year
  Sex: Male

DRUGS (1)
  1. MITOMYCIN-C BULK POWDER [Suspect]
     Indication: BLADDER CANCER
     Route: 043
     Dates: start: 20060628, end: 20060728

REACTIONS (4)
  - DERMATITIS ALLERGIC [None]
  - PALMAR ERYTHEMA [None]
  - RASH [None]
  - SCAB [None]
